FAERS Safety Report 21224527 (Version 1)
Quarter: 2022Q3

REPORT INFORMATION
  Report Type: Report from Study
  Country: US (occurrence: US)
  Receive Date: 20220817
  Receipt Date: 20220817
  Transmission Date: 20221026
  Serious: Yes (Other)
  Sender: FDA-Public Use
  Company Number: US-GILEAD-2022-0593776

PATIENT
  Sex: Male

DRUGS (2)
  1. COBICISTAT [Suspect]
     Active Substance: COBICISTAT
     Indication: HIV infection
     Dosage: 150 MG, QD
     Route: 048
     Dates: start: 202012
  2. VIMPAT [Suspect]
     Active Substance: LACOSAMIDE
     Indication: Epilepsy
     Dosage: UNKNOWN
     Route: 065
     Dates: start: 202012

REACTIONS (3)
  - Epilepsy [Recovering/Resolving]
  - Metabolic disorder [Unknown]
  - Somnolence [Unknown]
